FAERS Safety Report 15233733 (Version 1)
Quarter: 2018Q3

REPORT INFORMATION
  Report Type: Spontaneous
  Country: US (occurrence: US)
  Receive Date: 20180802
  Receipt Date: 20180802
  Transmission Date: 20181010
  Serious: No
  Sender: FDA-Public Use
  Company Number: US-ACTELION-A-NJ2018-176790

PATIENT
  Age: 87 Year
  Sex: Female

DRUGS (11)
  1. VALCHLOR [Suspect]
     Active Substance: MECHLORETHAMINE
     Indication: MYCOSIS FUNGOIDES
     Dosage: UNK
     Route: 061
     Dates: start: 20140519
  2. NAMENDA [Concomitant]
     Active Substance: MEMANTINE HYDROCHLORIDE
  3. PRESERVISION [Concomitant]
     Active Substance: MINERALS\VITAMINS
  4. LOVASTATIN. [Concomitant]
     Active Substance: LOVASTATIN
  5. POTASSIUM [Concomitant]
     Active Substance: POTASSIUM
  6. CLOBETA [Concomitant]
     Active Substance: CLOBETASOL PROPIONATE\COAL TAR
  7. ASPIRIN. [Concomitant]
     Active Substance: ASPIRIN
  8. GLUCOSAMINE + CHONDROITIN [Concomitant]
  9. COENZYME Q10 [Concomitant]
     Active Substance: UBIDECARENONE
  10. RANITIDINE. [Concomitant]
     Active Substance: RANITIDINE
  11. DESONIDE. [Concomitant]
     Active Substance: DESONIDE

REACTIONS (1)
  - Application site ulcer [Recovering/Resolving]
